FAERS Safety Report 7515732-6 (Version None)
Quarter: 2011Q2

REPORT INFORMATION
  Report Type: 
  Country: None (occurrence: None)
  Receive Date: 20110601
  Receipt Date: 20100729
  Transmission Date: 20111010
  Serious: Yes (Hospitalization, Other)
  Sender: FDA-Public Use
  Company Number: US-PFIZER INC-2010038923

PATIENT
  Sex: Female

DRUGS (3)
  1. LUNESTA [Concomitant]
     Indication: INSOMNIA
     Dosage: UNK
     Dates: start: 20071120
  2. ALPRAZOLAM [Concomitant]
     Indication: ANXIETY
     Dosage: UNK
  3. CHANTIX [Suspect]
     Indication: SMOKING CESSATION THERAPY
     Dosage: 0.5/1MG
     Route: 048
     Dates: start: 20071101, end: 20080101

REACTIONS (9)
  - PARANOIA [None]
  - DEPRESSION [None]
  - ANXIETY [None]
  - AMNESIA [None]
  - INSOMNIA [None]
  - MOOD SWINGS [None]
  - ABNORMAL BEHAVIOUR [None]
  - SUICIDAL IDEATION [None]
  - HALLUCINATION [None]
